FAERS Safety Report 5797284-4 (Version None)
Quarter: 2008Q2

REPORT INFORMATION
  Report Type: 
  Country: None (occurrence: None)
  Receive Date: 20080627
  Receipt Date: 20080612
  Transmission Date: 20081010
  Serious: Yes (Hospitalization)
  Sender: FDA-Public Use
  Company Number: 2008AL005375

PATIENT
  Age: 82 Year
  Sex: Female
  Weight: 61.2356 kg

DRUGS (7)
  1. DIGOXIN               (AMIDE) [Suspect]
     Indication: ARRHYTHMIA
     Dosage: 0.125MG DAILY PO
     Route: 048
     Dates: start: 20071001, end: 20080309
  2. GLYBURIDE [Concomitant]
  3. MAGNESIUM [Concomitant]
  4. COUMADIN [Concomitant]
  5. FUROSEMIDE [Concomitant]
  6. BYSTOLIC [Concomitant]
  7. MICARDIS [Concomitant]

REACTIONS (1)
  - THERAPEUTIC AGENT TOXICITY [None]
